FAERS Safety Report 21948470 (Version 2)
Quarter: 2023Q2

REPORT INFORMATION
  Report Type: Spontaneous
  Country: US (occurrence: US)
  Receive Date: 20230203
  Receipt Date: 20230427
  Transmission Date: 20230721
  Serious: No
  Sender: FDA-Public Use
  Company Number: US-LEO Pharma-348839

PATIENT
  Sex: Female

DRUGS (1)
  1. ADBRY [Suspect]
     Active Substance: TRALOKINUMAB-LDRM
     Indication: Dermatitis atopic
     Dosage: DOSAGE: 300 MG UNDER THE SKIN EVERY TWO WEEKS
     Route: 058
     Dates: start: 202207

REACTIONS (2)
  - Dizziness [Unknown]
  - Dizziness [Not Recovered/Not Resolved]
